FAERS Safety Report 7426587-2 (Version None)
Quarter: 2011Q2

REPORT INFORMATION
  Report Type: 
  Country: None (occurrence: None)
  Receive Date: 20110420
  Receipt Date: 20110412
  Transmission Date: 20111010
  Serious: Yes (Death, Other)
  Sender: FDA-Public Use
  Company Number: FR-GENZYME-THYM-1002405

PATIENT

DRUGS (13)
  1. PREDNISONE [Concomitant]
     Dosage: 10 MG, QD
     Route: 065
  2. CLAFORAN [Concomitant]
     Indication: ANTIBIOTIC PROPHYLAXIS
     Dosage: UNK
     Route: 065
  3. CELLCEPT [Concomitant]
     Indication: IMMUNOSUPPRESSION
     Dosage: 2 G, QD
     Route: 048
  4. PREDNISONE [Concomitant]
     Indication: IMMUNOSUPPRESSION
     Dosage: 500 MG, QD
     Route: 065
  5. THYMOGLOBULIN [Suspect]
     Indication: PROPHYLAXIS AGAINST TRANSPLANT REJECTION
     Dosage: 1 MG/KG, QD
     Route: 042
  6. VALGANCICLOVIR [Concomitant]
     Indication: ANTIVIRAL PROPHYLAXIS
     Dosage: 900 MG, QD
     Route: 065
  7. PREDNISONE [Concomitant]
     Dosage: 120 MG, QD
     Route: 065
  8. PROGRAF [Concomitant]
     Indication: IMMUNOSUPPRESSION
     Dosage: UNK
     Route: 048
  9. PREDNISONE [Concomitant]
     Dosage: 250 MG, QD
     Route: 065
  10. PREDNISONE [Concomitant]
     Dosage: 60 MG, QD
     Route: 065
  11. RED BLOOD CELLS [Concomitant]
     Indication: BLOOD PRODUCT TRANSFUSION
     Route: 065
  12. VANCOMYCIN HCL [Concomitant]
     Indication: ANTIBIOTIC PROPHYLAXIS
     Dosage: UNK
     Route: 065
  13. TRIMETHOPRIM + SULFAMETHOXAZOLE [Concomitant]
     Indication: ANTIBIOTIC PROPHYLAXIS
     Dosage: UNK
     Route: 065

REACTIONS (5)
  - ARTERIAL RUPTURE [None]
  - PSEUDOMONAS INFECTION [None]
  - CARDIAC ARREST [None]
  - ARTERIAL HAEMORRHAGE [None]
  - TRACHEOSTOMY MALFUNCTION [None]
